FAERS Safety Report 15416375 (Version 2)
Quarter: 2018Q4

REPORT INFORMATION
  Report Type: Report from Study
  Country: None (occurrence: AR)
  Receive Date: 20180924
  Receipt Date: 20181016
  Transmission Date: 20190204
  Serious: Yes (Other)
  Sender: FDA-Public Use
  Company Number: AR-ABBVIE-18K-007-2493676-00

PATIENT
  Age: 60 Year
  Sex: Male

DRUGS (2)
  1. LOTRIAL 10 [Concomitant]
     Indication: PRODUCT USED FOR UNKNOWN INDICATION
  2. HUMIRA [Suspect]
     Active Substance: ADALIMUMAB
     Indication: PSORIASIS
     Route: 058
     Dates: start: 20170512, end: 201807

REACTIONS (4)
  - Nasal oedema [Unknown]
  - Bone fissure [Unknown]
  - Nose deformity [Unknown]
  - Nasal inflammation [Unknown]

NARRATIVE: CASE EVENT DATE: 20180822
